FAERS Safety Report 10373808 (Version 1)
Quarter: 2014Q1

REPORT INFORMATION
  Report Type: Spontaneous
  Country: US (occurrence: None)
  Receive Date: 20140306
  Receipt Date: 20140306
  Transmission Date: 20141002
  Serious: Yes (Other)
  Sender: FDA-Public Use
  Company Number: 163-21880-13090108

PATIENT
  Age: 79 Year
  Sex: Male
  Weight: 66.23 kg

DRUGS (7)
  1. REVLIMID (LENALIDOMIDE) (10 MILLIGRAM, CAPSULES) [Suspect]
     Indication: PLASMA CELL MYELOMA
     Route: 048
     Dates: start: 20130513, end: 20130828
  2. ZOMETA (ZOLEDRONIC ACID) [Concomitant]
  3. PROCRIT (ERYTHROPOIETIN) [Concomitant]
  4. CLOPIDOGREL [Concomitant]
  5. GABAPENTIN [Concomitant]
  6. HYDROCHLOROTHIAZIDE [Concomitant]
  7. LOVASTATIN [Concomitant]

REACTIONS (1)
  - Pancytopenia [None]
